FAERS Safety Report 17628499 (Version 2)
Quarter: 2020Q2

REPORT INFORMATION
  Report Type: Spontaneous
  Country: US (occurrence: US)
  Receive Date: 20200406
  Receipt Date: 20200407
  Transmission Date: 20200713
  Serious: No
  Sender: FDA-Public Use
  Company Number: US-GLAXOSMITHKLINE-US2020054991

PATIENT
  Age: 53 Year
  Sex: Female

DRUGS (2)
  1. NUCALA [Suspect]
     Active Substance: MEPOLIZUMAB
     Indication: PRODUCT USED FOR UNKNOWN INDICATION
     Dosage: 100 MG, CYC EVERY MONTH
     Route: 058
     Dates: end: 20200116
  2. MUCINEX [Concomitant]
     Active Substance: GUAIFENESIN
     Indication: PRODUCT USED FOR UNKNOWN INDICATION
     Dosage: UNK
     Route: 065

REACTIONS (9)
  - Gastrooesophageal reflux disease [Not Recovered/Not Resolved]
  - Vascular graft [Recovered/Resolved]
  - Respiratory tract congestion [Recovered/Resolved]
  - Cough [Not Recovered/Not Resolved]
  - Dyspnoea [Recovered/Resolved]
  - Rhinorrhoea [Not Recovered/Not Resolved]
  - Malaise [Unknown]
  - Therapeutic product effect incomplete [Unknown]
  - Condition aggravated [Not Recovered/Not Resolved]

NARRATIVE: CASE EVENT DATE: 201912
